FAERS Safety Report 7346523-7 (Version None)
Quarter: 2011Q1

REPORT INFORMATION
  Report Type: 
  Country: None (occurrence: None)
  Receive Date: 20110311
  Receipt Date: 20110302
  Transmission Date: 20110831
  Serious: Yes (Other)
  Sender: FDA-Public Use
  Company Number: US-JNJFOC-20110302001

PATIENT
  Age: 61 Year
  Sex: Female

DRUGS (3)
  1. DURAGESIC-50 [Suspect]
     Indication: PAIN
     Route: 062
  2. DURAGESIC-50 [Suspect]
     Indication: PRODUCT USED FOR UNKNOWN INDICATION
     Route: 062
  3. FENTANYL-100 [Suspect]
     Indication: PAIN
     Route: 062

REACTIONS (5)
  - FEELING ABNORMAL [None]
  - ASTHENIA [None]
  - ARTERIAL THERAPEUTIC PROCEDURE [None]
  - CORONARY ARTERIAL STENT INSERTION [None]
  - MIGRAINE [None]
